APPROVED DRUG PRODUCT: DOXEPIN HYDROCHLORIDE
Active Ingredient: DOXEPIN HYDROCHLORIDE
Strength: EQ 25MG BASE
Dosage Form/Route: CAPSULE;ORAL
Application: A215076 | Product #002 | TE Code: AB
Applicant: ALEMBIC PHARMACEUTICALS LTD
Approved: Apr 21, 2021 | RLD: No | RS: No | Type: RX